FAERS Safety Report 8174313-4 (Version None)
Quarter: 2012Q1

REPORT INFORMATION
  Report Type: 
  Country: None (occurrence: None)
  Receive Date: 20120229
  Receipt Date: 20120214
  Transmission Date: 20120608
  Serious: Yes (Other)
  Sender: FDA-Public Use
  Company Number: JP-MERCK-1202USA03907

PATIENT
  Age: 81 Year
  Sex: Female

DRUGS (10)
  1. PEPCID RPD [Suspect]
     Indication: ABDOMINAL PAIN UPPER
     Route: 048
     Dates: start: 20120213, end: 20120215
  2. DILTIAZEM HCL [Concomitant]
     Route: 048
  3. PEPCID [Suspect]
     Indication: ABDOMINAL PAIN UPPER
     Route: 048
     Dates: start: 20120117, end: 20120127
  4. CLARITHROMYCIN [Concomitant]
     Route: 048
  5. MEDICON (DEXTROMETHORPHAN HYDROBROMIDE) [Concomitant]
     Route: 048
  6. TRANSAMIN [Concomitant]
     Route: 048
  7. ADONA [Concomitant]
     Route: 048
  8. METHYCOBAL [Concomitant]
     Route: 048
  9. ZETIA [Concomitant]
     Route: 048
  10. CANDESARTAN CILEXETIL [Concomitant]
     Route: 048

REACTIONS (1)
  - PURPURA [None]
